FAERS Safety Report 8621754-4 (Version None)
Quarter: 2012Q3

REPORT INFORMATION
  Report Type: 
  Country: None (occurrence: None)
  Receive Date: 20120821
  Receipt Date: 20120821
  Transmission Date: 20120928
  Serious: No
  Sender: FDA-Public Use
  Company Number: None

PATIENT
  Sex: Female
  Weight: 89.3586 kg

DRUGS (2)
  1. ZOLPIDEM [Suspect]
     Dosage: 5 MG HS PO
     Route: 048
     Dates: start: 20120612
  2. ZOLPIDEM [Suspect]
     Indication: INSOMNIA
     Dosage: 5MG HS PO
     Route: 048
     Dates: start: 20120711

REACTIONS (3)
  - VOMITING [None]
  - NAUSEA [None]
  - PRODUCT SUBSTITUTION ISSUE [None]
